FAERS Safety Report 8105622-2 (Version None)
Quarter: 2012Q1

REPORT INFORMATION
  Report Type: 
  Country: None (occurrence: None)
  Receive Date: 20120201
  Receipt Date: 20120119
  Transmission Date: 20120608
  Serious: Yes (Death, Hospitalization, Other)
  Sender: FDA-Public Use
  Company Number: US-ELI_LILLY_AND_COMPANY-US201008006635

PATIENT
  Sex: Female

DRUGS (33)
  1. PROVIGIL [Concomitant]
     Dosage: 200 MG, 2/D
  2. POTASSIUM [Concomitant]
  3. OPANA [Concomitant]
  4. OMEPRAZOLE [Concomitant]
     Dosage: 20 MG, 2/D
  5. CYCLOBENZAPRINE [Concomitant]
     Dosage: 10 MG, 3/D
  6. SPIRIVA [Concomitant]
     Dosage: 18 UG, 2/D
  7. LEVOTHYROXINE SODIUM [Concomitant]
     Dosage: 50 UG, DAILY (1/D)
  8. NAMENDA [Concomitant]
     Dosage: 10 MG, 2/D
  9. VITAMIN D [Concomitant]
  10. DILAUDID [Concomitant]
     Dosage: 4 MG, EVERY 6 HRS
  11. CLOTRIMAZOLE [Concomitant]
     Dosage: 10 MG, 4/D
  12. FORTEO [Suspect]
     Dosage: 20 UG, QD
     Route: 065
  13. CALCIUM [Concomitant]
  14. DILAUDID [Concomitant]
     Indication: PAIN
     Dosage: 4 MG, EVERY 4 HRS
  15. ALBUTEROL [Concomitant]
     Dosage: UNK, AS NEEDED
  16. FORTEO [Suspect]
     Dosage: 20 UG, QD
     Route: 065
  17. TOVIAZ [Concomitant]
  18. FLUOXETINE [Concomitant]
  19. LACTULOSE [Concomitant]
     Dosage: 30 MG, 2/D
  20. CHANTIX [Concomitant]
     Dosage: 1 MG, 2/D
  21. KLOR-CON [Concomitant]
     Dosage: 10 MEQ, AS NEEDED
  22. FORTEO [Suspect]
     Dosage: 20 UG, QD
     Route: 065
  23. PREDNISONE TAB [Concomitant]
     Dosage: 10 MG, DAILY (1/D)
  24. FISH OIL [Concomitant]
  25. FENTANYL CITRATE [Concomitant]
     Indication: PAIN
     Dosage: 75 UG, OTHER
  26. COPAXONE [Concomitant]
  27. SYMBICORT [Concomitant]
     Dosage: 160 UG, 2/D
  28. ROPINIROLE [Concomitant]
     Dosage: 0.25 D/F, DAILY (1/D)
  29. ALBUTEROL SULFATE [Concomitant]
     Dosage: UNK, AS NEEDED
  30. FORTEO [Suspect]
     Indication: OSTEOPOROSIS
     Dosage: 20 UG, QD
     Route: 065
  31. FORTEO [Suspect]
     Dosage: 20 UG, QD
     Route: 065
  32. SYMBICORT [Concomitant]
     Dosage: 4.5 UG, 2/D
  33. BUMETANIDE [Concomitant]
     Dosage: 0.5 MG, DAILY (1/D)

REACTIONS (11)
  - SPINAL DISORDER [None]
  - INTERVERTEBRAL DISC PROTRUSION [None]
  - DIZZINESS [None]
  - MALAISE [None]
  - PNEUMONIA FUNGAL [None]
  - DEATH [None]
  - CATARACT [None]
  - CONVULSION [None]
  - VOMITING [None]
  - ANKYLOSING SPONDYLITIS [None]
  - MALIGNANT MELANOMA [None]
